FAERS Safety Report 11564761 (Version 2)
Quarter: 2016Q1

REPORT INFORMATION
  Report Type: Report from Study
  Country: VE (occurrence: VE)
  Receive Date: 20150928
  Receipt Date: 20160301
  Transmission Date: 20160525
  Serious: Yes (Death)
  Sender: FDA-Public Use
  Company Number: VE-ABBVIE-15K-178-1471014-00

PATIENT
  Sex: Female

DRUGS (1)
  1. HUMIRA [Suspect]
     Active Substance: ADALIMUMAB
     Indication: RHEUMATOID ARTHRITIS
     Route: 058
     Dates: start: 20100225

REACTIONS (5)
  - Influenza [Fatal]
  - Peau d^orange [Fatal]
  - Myocardial infarction [Fatal]
  - Aortic disorder [Fatal]
  - Respiratory tract infection [Fatal]
